FAERS Safety Report 13576183 (Version 1)
Quarter: 2017Q2

REPORT INFORMATION
  Report Type: Spontaneous
  Country: IN (occurrence: IN)
  Receive Date: 20170524
  Receipt Date: 20170524
  Transmission Date: 20170830
  Serious: Yes (Other)
  Sender: FDA-Public Use
  Company Number: IN-CPL-000015

PATIENT
  Age: 24 Year
  Sex: Female

DRUGS (1)
  1. OFLOXACIN. [Suspect]
     Active Substance: OFLOXACIN
     Indication: DIARRHOEA

REACTIONS (5)
  - Hypersensitivity [Recovering/Resolving]
  - Mouth ulceration [Recovering/Resolving]
  - Discomfort [None]
  - Angioedema [Recovering/Resolving]
  - Pain [None]
